FAERS Safety Report 8027186-4 (Version None)
Quarter: 2011Q4

REPORT INFORMATION
  Report Type: 
  Country: None (occurrence: None)
  Receive Date: 20111130
  Receipt Date: 20110719
  Transmission Date: 20120403
  Serious: Yes (Hospitalization, Other)
  Sender: FDA-Public Use
  Company Number: US201107004985

PATIENT
  Sex: Male

DRUGS (1)
  1. BYETTA [Suspect]
     Indication: PRODUCT USED FOR UNKNOWN INDICATION
     Dosage: UNK, SUBCUTANEOUS
     Route: 058

REACTIONS (1)
  - PANCREATITIS [None]
